FAERS Safety Report 18656793 (Version 2)
Quarter: 2021Q1

REPORT INFORMATION
  Report Type: Spontaneous
  Country: MY (occurrence: MY)
  Receive Date: 20201224
  Receipt Date: 20210102
  Transmission Date: 20210419
  Serious: Yes (Other)
  Sender: FDA-Public Use
  Company Number: MY-AUROBINDO-AUR-APL-2020-062784

PATIENT
  Age: 55 Year
  Sex: Male

DRUGS (1)
  1. AUROTAZ?P POWDER FOR INJECTION 4.5G [Suspect]
     Active Substance: PIPERACILLIN SODIUM\TAZOBACTAM SODIUM
     Indication: PNEUMONIA
     Dosage: 4.5 GRAM, FOUR TIMES/DAY
     Route: 042

REACTIONS (1)
  - Rash erythematous [Recovering/Resolving]
